FAERS Safety Report 6457372-6 (Version None)
Quarter: 2009Q4

REPORT INFORMATION
  Report Type: 
  Country: None (occurrence: None)
  Receive Date: 20091119
  Receipt Date: 20090609
  Transmission Date: 20100525
  Serious: Yes (Hospitalization)
  Sender: FDA-Public Use
  Company Number: WAES 0911USA02620

PATIENT
  Age: 52 Year
  Sex: Male
  Weight: 85.7298 kg

DRUGS (2)
  1. CAP VORINOSTAT UNK [Suspect]
     Indication: FOLLICLE CENTRE LYMPHOMA, FOLLICULAR GRADE I, II, III STAGE I
     Dosage: UNK/UNK/PO
     Route: 048
  2. UNKNOWN [Concomitant]

REACTIONS (8)
  - BK VIRUS INFECTION [None]
  - CHILLS [None]
  - CULTURE URINE POSITIVE [None]
  - CYTOMEGALOVIRUS VIRAEMIA [None]
  - DIARRHOEA [None]
  - PANCYTOPENIA [None]
  - PYREXIA [None]
  - URINARY TRACT INFECTION VIRAL [None]
